FAERS Safety Report 13385958 (Version 1)
Quarter: 2017Q1

REPORT INFORMATION
  Report Type: Spontaneous
  Country: US (occurrence: US)
  Receive Date: 20170330
  Receipt Date: 20170330
  Transmission Date: 20170429
  Serious: No
  Sender: FDA-Public Use
  Company Number: US-BIOGEN-2017BI00376694

PATIENT
  Sex: Female

DRUGS (1)
  1. TECFIDERA [Suspect]
     Active Substance: DIMETHYL FUMARATE
     Indication: MULTIPLE SCLEROSIS
     Route: 065
     Dates: start: 20140319

REACTIONS (7)
  - Spinal osteoarthritis [Not Recovered/Not Resolved]
  - Headache [Unknown]
  - Malaise [Unknown]
  - Memory impairment [Recovered/Resolved]
  - Cerebral atrophy [Not Recovered/Not Resolved]
  - Insomnia [Unknown]
  - White blood cell count decreased [Recovered/Resolved]
